FAERS Safety Report 12286969 (Version 2)
Quarter: 2016Q3

REPORT INFORMATION
  Report Type: Report from Study
  Country: DE (occurrence: DE)
  Receive Date: 20160420
  Receipt Date: 20160729
  Transmission Date: 20161109
  Serious: Yes (Death, Hospitalization)
  Sender: FDA-Public Use
  Company Number: DE-SA-2016SA020897

PATIENT
  Age: 61 Year
  Sex: Male
  Weight: 123 kg

DRUGS (1)
  1. JEVTANA [Suspect]
     Active Substance: CABAZITAXEL
     Indication: PROSTATE CANCER METASTATIC
     Dosage: DOSE/ UNIT LAST CYCLE- 50 MG
     Route: 042
     Dates: start: 20160112, end: 20160112

REACTIONS (1)
  - Hypokalaemia [Fatal]

NARRATIVE: CASE EVENT DATE: 20160201
